FAERS Safety Report 9348348 (Version 1)
Quarter: 2013Q2

REPORT INFORMATION
  Report Type: Spontaneous
  Country: FR (occurrence: FR)
  Receive Date: 20130614
  Receipt Date: 20130614
  Transmission Date: 20140414
  Serious: Yes (Hospitalization)
  Sender: FDA-Public Use
  Company Number: FR-PFIZER INC-2013173320

PATIENT
  Age: 78 Year
  Sex: Male

DRUGS (7)
  1. TAHOR [Suspect]
     Dosage: 10 MG, 1X/DAY (IN THE EVENING)
     Route: 048
  2. PRADAXA [Interacting]
     Indication: ARRHYTHMIA
     Dosage: 110 MG, 2X/DAY
     Route: 048
     Dates: start: 20130402
  3. KARDEGIC [Suspect]
     Dosage: 75 MG, 1X/DAY
     Route: 048
  4. TEMERIT [Concomitant]
     Dosage: 1.25 (NO UNIT PROVIDED), A DAY
  5. MIANSERIN [Concomitant]
     Dosage: 30 MG, 1X/DAY (IN THE EVENING)
  6. SPECIAFOLDINE [Concomitant]
     Dosage: 5 MG, A DAY
  7. XATRAL [Concomitant]
     Dosage: 1 DF, 1X/DAY (IN THE EVENING)

REACTIONS (9)
  - Drug interaction [Recovered/Resolved with Sequelae]
  - Haematemesis [Recovered/Resolved with Sequelae]
  - Oesophageal ulcer [Recovered/Resolved with Sequelae]
  - Mallory-Weiss syndrome [Recovered/Resolved with Sequelae]
  - Anaemia [Recovered/Resolved with Sequelae]
  - Disorientation [Unknown]
  - Dysarthria [Unknown]
  - Atrial fibrillation [Unknown]
  - Malnutrition [Unknown]
